FAERS Safety Report 13450551 (Version 1)
Quarter: 2017Q2

REPORT INFORMATION
  Report Type: Report from Study
  Country: None (occurrence: BR)
  Receive Date: 20170418
  Receipt Date: 20170418
  Transmission Date: 20170830
  Serious: Yes (Hospitalization, Other)
  Sender: FDA-Public Use
  Company Number: BR-ABBVIE-17K-020-1943936-00

PATIENT
  Age: 30 Year
  Sex: Female
  Weight: 78 kg

DRUGS (2)
  1. HUMIRA [Suspect]
     Active Substance: ADALIMUMAB
     Indication: CROHN^S DISEASE
     Route: 058
     Dates: start: 20150127, end: 20150414
  2. HUMIRA [Suspect]
     Active Substance: ADALIMUMAB
     Route: 058
     Dates: start: 20160621

REACTIONS (8)
  - Post abortion haemorrhage [Recovered/Resolved]
  - Abortion spontaneous [Recovered/Resolved]
  - Somatic symptom disorder of pregnancy [Unknown]
  - Foetal death [Unknown]
  - Exposure during pregnancy [Unknown]
  - Large intestine anastomosis [Unknown]
  - Disseminated tuberculosis [Recovered/Resolved]
  - Pneumonia [Recovered/Resolved]

NARRATIVE: CASE EVENT DATE: 2015
